FAERS Safety Report 10293343 (Version 1)
Quarter: 2014Q3

REPORT INFORMATION
  Report Type: Spontaneous
  Country: US (occurrence: US)
  Receive Date: 20140710
  Receipt Date: 20140710
  Transmission Date: 20150326
  Serious: Yes (Hospitalization)
  Sender: FDA-Public Use
  Company Number: US-GLAXOSMITHKLINE-A1080648A

PATIENT
  Age: 69 Year
  Sex: Male

DRUGS (1)
  1. WELLBUTRIN SR [Suspect]
     Active Substance: BUPROPION HYDROCHLORIDE
     Indication: DEPRESSION
     Dosage: 150MG UNKNOWN
     Route: 065
     Dates: start: 20030915

REACTIONS (2)
  - Knee operation [Unknown]
  - Arthritis infective [Unknown]

NARRATIVE: CASE EVENT DATE: 20140615
